FAERS Safety Report 12404942 (Version 1)
Quarter: 2016Q2

REPORT INFORMATION
  Report Type: Spontaneous
  Country: GB (occurrence: GB)
  Receive Date: 20160525
  Receipt Date: 20160525
  Transmission Date: 20160815
  Serious: Yes (Other)
  Sender: FDA-Public Use
  Company Number: GB-BAYER-2016-100618

PATIENT
  Age: 29 Year
  Sex: Female

DRUGS (2)
  1. DIANETTE [Suspect]
     Active Substance: CYPROTERONE ACETATE\ETHINYL ESTRADIOL
     Indication: ACNE
     Route: 048
  2. YASMIN [Suspect]
     Active Substance: DROSPIRENONE\ETHINYL ESTRADIOL
     Route: 048

REACTIONS (9)
  - Joint swelling [Recovered/Resolved]
  - Hypertension [Recovered/Resolved]
  - Mood swings [None]
  - Hypoaesthesia [Recovered/Resolved]
  - Paraesthesia [Recovered/Resolved]
  - Feeling abnormal [None]
  - Skin discolouration [Recovered/Resolved]
  - Hemianaesthesia [Recovered/Resolved]
  - Migraine [Recovered/Resolved]
